FAERS Safety Report 23428612 (Version 2)
Quarter: 2024Q1

REPORT INFORMATION
  Report Type: Spontaneous
  Country: IT (occurrence: IT)
  Receive Date: 20240122
  Receipt Date: 20240129
  Transmission Date: 20240410
  Serious: Yes (Death)
  Sender: FDA-Public Use
  Company Number: None

PATIENT
  Age: 69 Year
  Sex: Female
  Weight: 81 kg

DRUGS (3)
  1. PACLITAXEL [Suspect]
     Active Substance: PACLITAXEL
     Indication: Breast cancer
     Dosage: FORM OF ADMIN: CONCENTRATE FOR SOLUTION FOR INJECTION/INFUSION??PACLITAXEL KABI* 1 VIAL 300MG/50ML L
     Route: 042
     Dates: start: 20231221, end: 20231221
  2. PACLITAXEL [Suspect]
     Active Substance: PACLITAXEL
     Indication: Breast cancer
  3. CARBOPLATIN [Suspect]
     Active Substance: CARBOPLATIN
     Indication: Breast cancer
     Dosage: CARBOPLATIN AHCL*IV 450MG/45ML?CARBOPLATIN (PREP. UMACA) - 127MG - DOSE TO PREPARE 12.7 ML - TOTAL V
     Route: 042
     Dates: start: 20231221, end: 20231221

REACTIONS (2)
  - Acute pulmonary oedema [Fatal]
  - Dyspnoea [Fatal]

NARRATIVE: CASE EVENT DATE: 20231221
